FAERS Safety Report 5008534-6 (Version None)
Quarter: 2006Q2

REPORT INFORMATION
  Report Type: 
  Country: None (occurrence: None)
  Receive Date: 20060522
  Receipt Date: 20060522
  Transmission Date: 20061013
  Serious: Yes (Other)
  Sender: FDA-Public Use
  Company Number: None

PATIENT
  Sex: Male
  Weight: 91.173 kg

DRUGS (1)
  1. LIPITOR [Suspect]
     Indication: BLOOD CHOLESTEROL INCREASED
     Dosage: 40 MG 1 TABLET PER DAY OTIC
     Dates: start: 20060407, end: 20060505

REACTIONS (3)
  - ERYTHEMA [None]
  - HYPOAESTHESIA [None]
  - MUSCULAR WEAKNESS [None]
